FAERS Safety Report 9678825 (Version 1)
Quarter: 2013Q4

REPORT INFORMATION
  Report Type: Spontaneous
  Country: US (occurrence: US)
  Receive Date: 20131108
  Receipt Date: 20131108
  Transmission Date: 20140711
  Serious: No
  Sender: FDA-Public Use
  Company Number: US-BAYER-2013-134021

PATIENT
  Age: 44 Year
  Sex: Female
  Weight: 224 kg

DRUGS (2)
  1. MAGNEVIST [Suspect]
     Indication: NUCLEAR MAGNETIC RESONANCE IMAGING
     Dosage: 10 ML, ONCE
     Route: 042
     Dates: start: 20131031, end: 20131031
  2. MAGNEVIST [Suspect]
     Indication: DEAFNESS

REACTIONS (1)
  - Urticaria [Recovered/Resolved]
